FAERS Safety Report 4370703-6 (Version None)
Quarter: 2004Q2

REPORT INFORMATION
  Report Type: 
  Country: None (occurrence: None)
  Receive Date: 20040604
  Receipt Date: 20040521
  Transmission Date: 20050107
  Serious: Yes (Other)
  Sender: FDA-Public Use
  Company Number: PHNU2004DE01888

PATIENT
  Age: 71 Year
  Sex: Female

DRUGS (3)
  1. GLEEVEC [Suspect]
     Indication: CHRONIC MYELOID LEUKAEMIA
     Dosage: 100 MG, QD4SDO
     Route: 048
     Dates: start: 20040501, end: 20040501
  2. GLEEVEC [Suspect]
     Dosage: 100 MG, QD3SDO
     Route: 048
     Dates: start: 20040501
  3. GLEEVEC [Suspect]
     Dosage: 100 MG, QD4SDO
     Route: 048
     Dates: start: 20000101, end: 20040501

REACTIONS (10)
  - ABASIA [None]
  - ANOREXIA [None]
  - ASTHENIA [None]
  - BREAST CANCER RECURRENT [None]
  - DYSPNOEA [None]
  - MASTECTOMY [None]
  - METASTASES TO LIVER [None]
  - NAUSEA [None]
  - TREMOR [None]
  - VOMITING [None]
